FAERS Safety Report 6349608-7 (Version None)
Quarter: 2009Q3

REPORT INFORMATION
  Report Type: 
  Country: None (occurrence: None)
  Receive Date: 20090911
  Receipt Date: 20090831
  Transmission Date: 20100115
  Serious: Yes (Hospitalization)
  Sender: FDA-Public Use
  Company Number: BE-ABBOTT-09P-013-0579333-00

PATIENT
  Age: 26 Year
  Sex: Male
  Weight: 65 kg

DRUGS (11)
  1. HUMIRA [Suspect]
     Indication: CROHN'S DISEASE
     Route: 058
     Dates: start: 20080401, end: 20090201
  2. MEDROL [Concomitant]
     Indication: DRUG USE FOR UNKNOWN INDICATION
     Dates: start: 20051001
  3. MEDROL [Concomitant]
     Dates: start: 20060801
  4. MEDROL [Concomitant]
  5. MEDROL [Concomitant]
     Dates: start: 20090728, end: 20090811
  6. ZANTAC [Concomitant]
     Indication: DRUG USE FOR UNKNOWN INDICATION
  7. CACIT D3 [Concomitant]
     Indication: DRUG USE FOR UNKNOWN INDICATION
     Dosage: 1000/880
  8. BACTRIM DS [Concomitant]
     Indication: DRUG USE FOR UNKNOWN INDICATION
     Dosage: 2CO ON TUESDAYS AND 2CO ON FRIDAYS
  9. SALYSYLICACID 8% + BETAMETHASONEVALERATE 0.1% [Concomitant]
     Indication: DRUG USE FOR UNKNOWN INDICATION
     Dosage: IN UNGUENTUM EMUSIFICANS AD 100% FOR THE SCALP
  10. COLD CREAM [Concomitant]
     Indication: DRUG USE FOR UNKNOWN INDICATION
     Dosage: FOR THE BODY
  11. DAFALGAN [Concomitant]
     Indication: DRUG USE FOR UNKNOWN INDICATION

REACTIONS (11)
  - BRONCHITIS [None]
  - COUGH [None]
  - DECREASED APPETITE [None]
  - DIARRHOEA [None]
  - DIARRHOEA HAEMORRHAGIC [None]
  - ECZEMA NUMMULAR [None]
  - GENERAL PHYSICAL CONDITION ABNORMAL [None]
  - MALAISE [None]
  - PNEUMONIA [None]
  - RETINAL DISORDER [None]
  - WEIGHT DECREASED [None]
